FAERS Safety Report 14894698 (Version 2)
Quarter: 2018Q2

REPORT INFORMATION
  Report Type: Spontaneous
  Country: US (occurrence: US)
  Receive Date: 20180515
  Receipt Date: 20180615
  Transmission Date: 20180711
  Serious: Yes (Hospitalization)
  Sender: FDA-Public Use
  Company Number: US-ASTRAZENECA-2018SE61945

PATIENT
  Age: 719 Month
  Sex: Female
  Weight: 60.6 kg

DRUGS (35)
  1. PHENERGAIN [Concomitant]
     Indication: IRRITABLE BOWEL SYNDROME
     Dosage: 25.0MG AS REQUIRED
     Route: 048
  2. CLONAZEPAM. [Concomitant]
     Active Substance: CLONAZEPAM
     Indication: RESTLESS LEGS SYNDROME
     Route: 048
  3. BACLOFEN. [Concomitant]
     Active Substance: BACLOFEN
     Indication: MUSCLE SPASMS
     Dosage: AS REQUIRED
     Route: 048
  4. OMEGA 3 [Concomitant]
     Active Substance: OMEGA-3 FATTY ACIDS
  5. MECLIZINE [Concomitant]
     Active Substance: MECLIZINE HYDROCHLORIDE
     Indication: VERTIGO
     Dosage: 25.0MG AS REQUIRED
     Route: 048
  6. SYMBICORT [Suspect]
     Active Substance: BUDESONIDE\FORMOTEROL FUMARATE DIHYDRATE
     Indication: BRONCHIECTASIS
     Dosage: 160/4.5, 2 PUFFS TWICE A DAY
     Route: 055
     Dates: start: 201708
  7. PHENERGAIN [Concomitant]
     Indication: NAUSEA
     Dosage: 25.0MG AS REQUIRED
     Route: 048
  8. ALBUTEROL SULFATE AND IPRATROPIUM BROMIDE AND SODIUM CHLORIDE [Concomitant]
     Indication: BRONCHIECTASIS
     Dosage: TWO TIMES A DAY
     Route: 055
     Dates: start: 201708
  9. STOOL SOFTENER (DOCUSATE) [Concomitant]
     Active Substance: DOCUSATE
     Indication: CROHN^S DISEASE
     Dosage: GENERIC 100 MG TWO TIMES A DAY
     Route: 048
  10. STOOL SOFTENER (DOCUSATE) [Concomitant]
     Active Substance: DOCUSATE
     Indication: IRRITABLE BOWEL SYNDROME
     Dosage: GENERIC 100 MG TWO TIMES A DAY
     Route: 048
  11. PERCOCET APAP [Concomitant]
     Indication: PAIN
     Dosage: AS REQUIRED
     Route: 048
     Dates: start: 2004
  12. LEVOTHYROXINE. [Concomitant]
     Active Substance: LEVOTHYROXINE
     Indication: THYROID DISORDER
     Route: 048
  13. ISOSORBIDE MONONITRATE. [Concomitant]
     Active Substance: ISOSORBIDE MONONITRATE
     Indication: ANGINA PECTORIS
     Route: 048
     Dates: start: 2017
  14. BUPROPION. [Concomitant]
     Active Substance: BUPROPION
     Indication: DEPRESSION
     Route: 048
  15. VITAMIN B12 [Concomitant]
     Active Substance: CYANOCOBALAMIN
     Indication: VITAMIN B12 DEFICIENCY
     Dosage: MONTHLY
  16. HYOSCYAMINE. [Concomitant]
     Active Substance: HYOSCYAMINE
     Indication: ABDOMINAL PAIN UPPER
     Route: 060
  17. FLAXSEED [Concomitant]
     Active Substance: FLAX SEED
     Indication: HEPATIC STEATOSIS
     Dosage: DAILY
     Route: 048
     Dates: start: 201706
  18. SODIUM BICARBONATE. [Concomitant]
     Active Substance: SODIUM BICARBONATE
     Indication: RENAL DISORDER
     Dosage: TWO TIMES A DAY
     Route: 048
  19. PANTOPRAZOLE SODIUM. [Concomitant]
     Active Substance: PANTOPRAZOLE SODIUM
     Indication: GASTROOESOPHAGEAL REFLUX DISEASE
     Route: 048
  20. MONTELUKAST [Concomitant]
     Active Substance: MONTELUKAST SODIUM
     Indication: DRUG HYPERSENSITIVITY
     Route: 048
     Dates: start: 2017
  21. VALACICLOVIR [Concomitant]
     Active Substance: VALACYCLOVIR HYDROCHLORIDE
     Indication: HERPES VIRUS INFECTION
     Route: 048
  22. SIMVASTATIN. [Concomitant]
     Active Substance: SIMVASTATIN
     Indication: BLOOD CHOLESTEROL ABNORMAL
     Route: 048
  23. GINGER. [Concomitant]
     Active Substance: GINGER
     Indication: HEPATIC STEATOSIS
     Dosage: DAILY
     Route: 048
     Dates: start: 201706
  24. GABAPENTIN. [Concomitant]
     Active Substance: GABAPENTIN
     Indication: RESTLESS LEGS SYNDROME
     Route: 048
  25. GABAPENTIN. [Concomitant]
     Active Substance: GABAPENTIN
     Indication: RESTLESS LEGS SYNDROME
     Dosage: AS REQUIRED
     Route: 048
  26. GABAPENTIN. [Concomitant]
     Active Substance: GABAPENTIN
     Indication: MIGRAINE
     Dosage: AS REQUIRED
     Route: 048
  27. BACLOFEN. [Concomitant]
     Active Substance: BACLOFEN
     Indication: MUSCLE SPASMS
     Route: 048
     Dates: start: 2004
  28. GARLIC. [Concomitant]
     Active Substance: GARLIC
     Indication: HEPATIC STEATOSIS
     Dosage: DAILY
     Route: 048
  29. GABAPENTIN. [Concomitant]
     Active Substance: GABAPENTIN
     Indication: MIGRAINE
     Route: 048
  30. NARATRIPTAN [Concomitant]
     Active Substance: NARATRIPTAN HYDROCHLORIDE
     Indication: MIGRAINE
     Dosage: AS REQUIRED
     Route: 048
     Dates: start: 2016
  31. PERCOCET APAP [Concomitant]
     Indication: PAIN
     Route: 048
  32. TRANSDERM SC [Concomitant]
     Indication: VERTIGO
     Dosage: AS REQUIRED
     Dates: start: 2017
  33. CALCIUM CITRATE [Concomitant]
     Active Substance: CALCIUM CITRATE
     Indication: BONE DISORDER
     Route: 048
  34. VENTOLIN HFA [Concomitant]
     Active Substance: ALBUTEROL SULFATE
     Indication: BRONCHIECTASIS
     Dosage: 2 PUFFS AS NEEDED, AND HAD ONLY TAKEN IT TWICE
     Route: 055
     Dates: start: 201708
  35. RANEXA [Concomitant]
     Active Substance: RANOLAZINE
     Indication: ANGINA PECTORIS
     Dosage: TWO TIMES A DAY
     Route: 048
     Dates: start: 201708

REACTIONS (8)
  - Neck pain [Unknown]
  - Off label use [Unknown]
  - Vitamin B12 deficiency [Unknown]
  - Back pain [Unknown]
  - Product use in unapproved indication [Unknown]
  - Respiratory failure [Unknown]
  - Glossodynia [Unknown]
  - Tongue discomfort [Unknown]

NARRATIVE: CASE EVENT DATE: 201708
